FAERS Safety Report 8977627 (Version 1)
Quarter: 2012Q4

REPORT INFORMATION
  Report Type: 
  Country: US (occurrence: US)
  Receive Date: 20121220
  Receipt Date: 20121220
  Transmission Date: 20130627
  Serious: Yes (Death)
  Sender: FDA-Public Use
  Company Number: US-GLAXOSMITHKLINE-A1006105A

PATIENT
  Age: 39 Year
  Sex: Female

DRUGS (3)
  1. VOTRIENT [Suspect]
     Indication: MALIGNANT SOFT TISSUE NEOPLASM
     Dosage: 1000MG Per day
     Route: 048
     Dates: start: 20120926, end: 20121216
  2. METHADONE [Concomitant]
  3. KLONOPIN [Concomitant]

REACTIONS (1)
  - Neoplasm malignant [Fatal]
